FAERS Safety Report 5142162-7 (Version None)
Quarter: 2006Q4

REPORT INFORMATION
  Report Type: 
  Country: None (occurrence: None)
  Receive Date: 20061102
  Receipt Date: 20061018
  Transmission Date: 20070319
  Serious: Yes (Hospitalization)
  Sender: FDA-Public Use
  Company Number: JP-PURDUE-USA_2006_0025426

PATIENT
  Age: 47 Year
  Sex: Female

DRUGS (7)
  1. CEFDITOREN PIVOXIL (SIMILAR TO NDA 21-222) [Suspect]
     Indication: UPPER RESPIRATORY TRACT INFLAMMATION
     Dosage: 100 MG, DAILY
     Route: 048
     Dates: start: 20060930, end: 20060930
  2. MUCOSTA [Concomitant]
     Indication: UPPER RESPIRATORY TRACT INFLAMMATION
     Dosage: 100 MG, DAILY
     Route: 048
     Dates: start: 20060930, end: 20060930
  3. MUCOSTA [Concomitant]
     Dosage: 100 MG, DAILY
     Route: 048
     Dates: start: 20061002, end: 20061004
  4. KLARICID [Suspect]
     Indication: UPPER RESPIRATORY TRACT INFLAMMATION
     Dosage: 400 MG, DAILY
     Route: 048
     Dates: start: 20061002, end: 20061004
  5. GANATON [Concomitant]
     Indication: UPPER RESPIRATORY TRACT INFLAMMATION
     Dosage: 150 MG, DAILY
     Route: 048
     Dates: start: 20061002, end: 20061004
  6. PL [Concomitant]
     Indication: UPPER RESPIRATORY TRACT INFLAMMATION
     Dosage: 3 GRAM, DAILY
     Route: 048
     Dates: start: 20060930, end: 20060930
  7. PL [Concomitant]
     Dosage: 3 GRAM, DAILY
     Route: 048
     Dates: start: 20061002, end: 20061004

REACTIONS (6)
  - ALANINE AMINOTRANSFERASE INCREASED [None]
  - ASPARTATE AMINOTRANSFERASE INCREASED [None]
  - BLOOD ALKALINE PHOSPHATASE INCREASED [None]
  - BLOOD BILIRUBIN INCREASED [None]
  - HEPATIC FUNCTION ABNORMAL [None]
  - URTICARIA [None]
